FAERS Safety Report 4742364-5 (Version None)
Quarter: 2005Q3

REPORT INFORMATION
  Report Type: 
  Country: None (occurrence: None)
  Receive Date: 20050810
  Receipt Date: 20050810
  Transmission Date: 20060218
  Serious: No
  Sender: FDA-Public Use
  Company Number: None

PATIENT
  Age: 45 Year
  Sex: Female
  Weight: 113.3993 kg

DRUGS (9)
  1. MORPHINE [Suspect]
     Indication: PROCEDURAL PAIN
     Dosage: 2 MG IM
     Route: 030
  2. . [Concomitant]
  3. . [Concomitant]
  4. . [Concomitant]
  5. . [Concomitant]
  6. . [Concomitant]
  7. . [Concomitant]
  8. . [Concomitant]
  9. . [Concomitant]

REACTIONS (1)
  - HYPOTENSION [None]
